FAERS Safety Report 8360535-6 (Version None)
Quarter: 2012Q2

REPORT INFORMATION
  Report Type: 
  Country: None (occurrence: None)
  Receive Date: 20120515
  Receipt Date: 20120503
  Transmission Date: 20120825
  Serious: Yes (Other)
  Sender: FDA-Public Use
  Company Number: US-ELI_LILLY_AND_COMPANY-US201203000923

PATIENT
  Sex: Male
  Weight: 77.8 kg

DRUGS (5)
  1. FOLIC ACID [Concomitant]
     Dosage: UNK, QD
     Route: 048
     Dates: start: 20111204
  2. ALIMTA [Suspect]
     Dosage: 782 MG, UNKNOWN
     Dates: start: 20120104
  3. VITAMIN B-12 [Concomitant]
     Dosage: 1000 MG, EVERY 4 WEEKS
     Route: 058
     Dates: start: 20111204
  4. CORTICOSTEROIDS [Concomitant]
     Dosage: UNK, BID
     Route: 048
     Dates: start: 20111204
  5. ALIMTA [Suspect]
     Indication: NON-SMALL CELL LUNG CANCER STAGE IV
     Dosage: 990 MG, EVERY 3 WEEKS
     Route: 042
     Dates: start: 20111221

REACTIONS (2)
  - FATIGUE [None]
  - TOXICITY TO VARIOUS AGENTS [None]
